FAERS Safety Report 6039072-X (Version None)
Quarter: 2009Q1

REPORT INFORMATION
  Report Type: 
  Country: None (occurrence: None)
  Receive Date: 20090115
  Receipt Date: 20090108
  Transmission Date: 20090719
  Serious: Yes (Hospitalization)
  Sender: FDA-Public Use
  Company Number: FR-WYE-G02899809

PATIENT
  Sex: Female

DRUGS (3)
  1. TAZOCILLINE [Suspect]
     Route: 042
     Dates: start: 20081027, end: 20081103
  2. NEBCIN [Suspect]
     Route: 042
     Dates: start: 20081029, end: 20081030
  3. VANCOMYCIN HYDROCHLORIDE [Suspect]
     Route: 042
     Dates: start: 20081027, end: 20081103

REACTIONS (3)
  - INFUSION SITE ERYTHEMA [None]
  - INFUSION SITE EXTRAVASATION [None]
  - INFUSION SITE SWELLING [None]
